FAERS Safety Report 21816125 (Version 1)
Quarter: 2023Q1

REPORT INFORMATION
  Report Type: Spontaneous
  Country: CH (occurrence: CH)
  Receive Date: 20230104
  Receipt Date: 20230104
  Transmission Date: 20230418
  Serious: Yes (Other)
  Sender: FDA-Public Use
  Company Number: CH-TAKEDA-2022TUS103585

PATIENT
  Age: 73 Year
  Sex: Female

DRUGS (10)
  1. KIOVIG [Suspect]
     Active Substance: HUMAN IMMUNOGLOBULIN G
     Indication: Antibody test abnormal
     Dosage: UNK
     Route: 042
     Dates: start: 20220913, end: 20220913
  2. KIOVIG [Suspect]
     Active Substance: HUMAN IMMUNOGLOBULIN G
     Dosage: UNK
     Route: 042
     Dates: start: 20221109, end: 20221109
  3. BENSERAZIDE HYDROCHLORIDE\LEVODOPA [Concomitant]
     Active Substance: BENSERAZIDE HYDROCHLORIDE\LEVODOPA
     Dosage: UNK, QD
     Route: 048
     Dates: start: 2022
  4. PRAMIPEXOL ER SANDOZ [Concomitant]
     Dosage: 0.5 MILLIGRAM, TID
     Route: 048
     Dates: start: 2022
  5. NEBIVOLOL [Concomitant]
     Active Substance: NEBIVOLOL
     Dosage: 5 MILLIGRAM
     Route: 048
     Dates: start: 2022
  6. LEVODOPA [Concomitant]
     Active Substance: LEVODOPA
     Dosage: UNK UNK, Q2HR
     Route: 048
     Dates: start: 2022
  7. XADAGO [Concomitant]
     Active Substance: SAFINAMIDE MESYLATE
     Dosage: 50 MILLIGRAM, QD
     Route: 048
     Dates: start: 2022
  8. PROGESTERONE [Concomitant]
     Active Substance: PROGESTERONE
     Dosage: UNK UNK, QD
     Route: 048
     Dates: start: 2022
  9. MELATONIN [Concomitant]
     Active Substance: MELATONIN
     Dosage: 2 MILLIGRAM, BID
     Route: 048
     Dates: start: 2022
  10. LORAZEPAM [Concomitant]
     Active Substance: LORAZEPAM
     Dosage: 1 MILLIGRAM
     Route: 048
     Dates: start: 2022

REACTIONS (2)
  - Parkinson^s disease [Recovering/Resolving]
  - Influenza like illness [Unknown]

NARRATIVE: CASE EVENT DATE: 20220915
